FAERS Safety Report 10062622 (Version 1)
Quarter: 2014Q2

REPORT INFORMATION
  Report Type: Spontaneous
  Country: US (occurrence: US)
  Receive Date: 20140407
  Receipt Date: 20140407
  Transmission Date: 20141212
  Serious: Yes (Other)
  Sender: FDA-Public Use
  Company Number: US-GLAXOSMITHKLINE-A1064430A

PATIENT
  Age: 64 Year
  Sex: Female

DRUGS (1)
  1. BENLYSTA [Suspect]
     Indication: SYSTEMIC LUPUS ERYTHEMATOSUS
     Dosage: 120MG UNKNOWN
     Route: 065
     Dates: start: 20130915

REACTIONS (3)
  - Spinal fracture [Unknown]
  - Oesophageal irritation [Recovered/Resolved]
  - Fatigue [Recovered/Resolved]
